FAERS Safety Report 14170052 (Version 3)
Quarter: 2019Q2

REPORT INFORMATION
  Report Type: Spontaneous
  Country: CZ (occurrence: CZ)
  Receive Date: 20171108
  Receipt Date: 20190515
  Transmission Date: 20190711
  Serious: Yes (Death, Hospitalization, Other)
  Sender: FDA-Public Use
  Company Number: PHHY2017CZ153228

PATIENT
  Sex: Male

DRUGS (5)
  1. NADROPARIN [Concomitant]
     Active Substance: NADROPARIN
     Indication: PRODUCT USED FOR UNKNOWN INDICATION
     Route: 065
  2. OMEPRAZOL [Concomitant]
     Active Substance: OMEPRAZOLE
     Indication: PRODUCT USED FOR UNKNOWN INDICATION
     Route: 048
  3. AMOXICILLIN + CLAVULANATE POTASSIUM [Suspect]
     Active Substance: AMOXICILLIN\CLAVULANATE POTASSIUM
     Indication: PNEUMONIA
     Route: 065
  4. AMOXICILLIN + CLAVULANATE POTASSIUM [Suspect]
     Active Substance: AMOXICILLIN\CLAVULANATE POTASSIUM
     Indication: NOSOCOMIAL INFECTION
  5. AMLODIPINE [Concomitant]
     Active Substance: AMLODIPINE BESYLATE
     Indication: PRODUCT USED FOR UNKNOWN INDICATION
     Route: 065

REACTIONS (27)
  - Toxic epidermal necrolysis [Fatal]
  - Aspergillus infection [Fatal]
  - Lower respiratory tract infection [Fatal]
  - Urinary tract infection [Fatal]
  - Pneumonia [Fatal]
  - Cachexia [Not Recovered/Not Resolved]
  - Bacterial infection [Unknown]
  - Escherichia infection [Fatal]
  - Pathogen resistance [Fatal]
  - Skin infection [Fatal]
  - Dermatitis allergic [Unknown]
  - Klebsiella infection [Fatal]
  - Sepsis [Fatal]
  - Morganella infection [Fatal]
  - Tracheobronchitis [Fatal]
  - Pyelonephritis [Fatal]
  - Myocarditis mycotic [Fatal]
  - Lung infection [Fatal]
  - Central nervous system fungal infection [Fatal]
  - Encephalitis fungal [Fatal]
  - Systemic infection [Fatal]
  - Staphylococcal infection [Fatal]
  - Abscess fungal [Fatal]
  - Pneumonia pseudomonal [Fatal]
  - Candida infection [Fatal]
  - Proteus infection [Fatal]
  - Chorioretinitis [Not Recovered/Not Resolved]
